FAERS Safety Report 5601811-7 (Version None)
Quarter: 2008Q1

REPORT INFORMATION
  Report Type: 
  Country: None (occurrence: None)
  Receive Date: 20080124
  Receipt Date: 20080114
  Transmission Date: 20080703
  Serious: Yes (Death, Hospitalization)
  Sender: FDA-Public Use
  Company Number: FR-BRISTOL-MYERS SQUIBB COMPANY-14031165

PATIENT
  Age: 65 Year
  Sex: Female

DRUGS (4)
  1. CYCLOPHOSPHAMIDE [Suspect]
     Indication: BREAST CANCER
     Route: 042
     Dates: start: 20070809
  2. EPIRUBICIN HCL [Suspect]
     Indication: BREAST CANCER
     Route: 042
     Dates: start: 20070809
  3. FLUOROURACIL [Suspect]
     Indication: BREAST CANCER
     Route: 042
     Dates: start: 20070809
  4. TAXOTERE [Suspect]
     Indication: BREAST CANCER
     Route: 042
     Dates: start: 20070925

REACTIONS (13)
  - APLASIA [None]
  - ATRIAL FIBRILLATION [None]
  - CARDIAC FAILURE [None]
  - CARDIOGENIC SHOCK [None]
  - DIABETES MELLITUS INADEQUATE CONTROL [None]
  - DISORIENTATION [None]
  - DYSPNOEA AT REST [None]
  - GENERAL PHYSICAL HEALTH DETERIORATION [None]
  - LEFT VENTRICULAR DYSFUNCTION [None]
  - LOSS OF CONSCIOUSNESS [None]
  - NEUTROPHIL COUNT DECREASED [None]
  - OEDEMA [None]
  - PLEURAL EFFUSION [None]
